FAERS Safety Report 21811447 (Version 1)
Quarter: 2023Q1

REPORT INFORMATION
  Report Type: Spontaneous
  Country: US (occurrence: US)
  Receive Date: 20230103
  Receipt Date: 20230103
  Transmission Date: 20230418
  Serious: No
  Sender: FDA-Public Use
  Company Number: UNT-2022-014826

PATIENT
  Sex: Female
  Weight: 117 kg

DRUGS (4)
  1. ZAROXOLYN [Suspect]
     Active Substance: METOLAZONE
     Indication: Fluid retention
     Dosage: UNK
     Route: 065
  2. REMODULIN [Suspect]
     Active Substance: TREPROSTINIL
     Indication: Pulmonary arterial hypertension
     Dosage: 0.022 MICROGRAM/KILOGRAM
     Route: 041
     Dates: start: 20211223
  3. REMODULIN [Suspect]
     Active Substance: TREPROSTINIL
     Dosage: 0.028 MICROGRAM/KILOGRAM
     Route: 041
  4. SILDENAFIL CITRATE [Concomitant]
     Active Substance: SILDENAFIL CITRATE
     Indication: Product used for unknown indication
     Dosage: UNK
     Route: 065

REACTIONS (3)
  - Therapeutic response decreased [Unknown]
  - Pruritus [Unknown]
  - Dermatitis contact [Unknown]
